FAERS Safety Report 24260249 (Version 7)
Quarter: 2025Q3

REPORT INFORMATION
  Report Type: Report from Study
  Country: US (occurrence: US)
  Receive Date: 20240828
  Receipt Date: 20250902
  Transmission Date: 20251020
  Serious: Yes (Other)
  Sender: TAKEDA
  Company Number: US-TAKEDA-2024TUS086311

PATIENT
  Age: 0 Year
  Sex: Female

DRUGS (8)
  1. ADVATE [Suspect]
     Active Substance: ANTIHEMOPHILIC FACTOR, HUMAN RECOMBINANT
     Indication: Prophylaxis
  2. ADVATE [Suspect]
     Active Substance: ANTIHEMOPHILIC FACTOR, HUMAN RECOMBINANT
  3. ADVATE [Suspect]
     Active Substance: ANTIHEMOPHILIC FACTOR, HUMAN RECOMBINANT
  4. ADVATE [Suspect]
     Active Substance: ANTIHEMOPHILIC FACTOR, HUMAN RECOMBINANT
  5. ADVATE [Suspect]
     Active Substance: ANTIHEMOPHILIC FACTOR, HUMAN RECOMBINANT
     Dosage: 350 INTERNATIONAL UNIT, 1/WEEK
  6. ADVATE [Suspect]
     Active Substance: ANTIHEMOPHILIC FACTOR, HUMAN RECOMBINANT
     Dosage: 350 INTERNATIONAL UNIT, 1/WEEK
  7. ADVATE [Suspect]
     Active Substance: ANTIHEMOPHILIC FACTOR, HUMAN RECOMBINANT
  8. ADVATE [Suspect]
     Active Substance: ANTIHEMOPHILIC FACTOR, HUMAN RECOMBINANT

REACTIONS (21)
  - Contusion [Recovered/Resolved]
  - Haemorrhage [Recovered/Resolved]
  - Haemarthrosis [Recovered/Resolved]
  - Eye contusion [Recovered/Resolved]
  - Muscle haemorrhage [Unknown]
  - Peripheral swelling [Unknown]
  - Head injury [Unknown]
  - Mass [Recovered/Resolved]
  - Pain in extremity [Recovered/Resolved]
  - Joint injury [Unknown]
  - Platelet count increased [Unknown]
  - Platelet count abnormal [Unknown]
  - Cellulitis [Unknown]
  - Product dose omission issue [Unknown]
  - Arthropod bite [Unknown]
  - Eye injury [Unknown]
  - Fall [Unknown]
  - Product use issue [Unknown]
  - Insurance issue [Unknown]
  - Limb injury [Recovered/Resolved]
  - Pyrexia [Recovered/Resolved]

NARRATIVE: CASE EVENT DATE: 20210110
